FAERS Safety Report 5174392-2 (Version None)
Quarter: 2006Q4

REPORT INFORMATION
  Report Type: 
  Country: None (occurrence: None)
  Receive Date: 20061214
  Receipt Date: 20061207
  Transmission Date: 20070319
  Serious: Yes (Other)
  Sender: FDA-Public Use
  Company Number: US-ELI_LILLY_AND_COMPANY-US200612001186

PATIENT
  Age: 49 Year
  Sex: Female

DRUGS (6)
  1. HUMALOG [Suspect]
     Indication: DIABETES MELLITUS
     Dosage: SLIDING SCALE PER CARBOHYDRATE COUNT
     Dates: start: 20011101
  2. DEPAKOTE [Concomitant]
     Indication: CONVULSION
     Dosage: 2 UNK, EACH MORNING
  3. DEPAKOTE [Concomitant]
     Dosage: 2 UNK, EACH EVENING
  4. CLONAZEPAM [Concomitant]
     Indication: CONVULSION
     Dosage: 1 UNK, 3/D
  5. LAMICTAL [Concomitant]
     Indication: CONVULSION
     Dosage: 1 UNK, EACH MORNING
  6. LAMICTAL [Concomitant]
     Dosage: 1.5 UNK, EACH EVENING

REACTIONS (6)
  - APHASIA [None]
  - BLOOD GLUCOSE DECREASED [None]
  - CONVULSION [None]
  - GRAND MAL CONVULSION [None]
  - HYPOTONIA [None]
  - MEMORY IMPAIRMENT [None]
